FAERS Safety Report 20331431 (Version 1)
Quarter: 2022Q1

REPORT INFORMATION
  Report Type: Spontaneous
  Country: PT (occurrence: PT)
  Receive Date: 20220113
  Receipt Date: 20220113
  Transmission Date: 20220423
  Serious: Yes (Other)
  Sender: FDA-Public Use
  Company Number: PT-AMGEN-PRTSP2022004078

PATIENT

DRUGS (5)
  1. FILGRASTIM [Suspect]
     Active Substance: FILGRASTIM
     Indication: Prophylaxis
     Dosage: UNK (FROM DAY 8 TO DAY 14)
     Route: 058
  2. PEGFILGRASTIM [Suspect]
     Active Substance: PEGFILGRASTIM
     Indication: Prophylaxis
     Dosage: UNK (ON DAY 6)
     Route: 058
  3. BLEOMYCIN [Concomitant]
     Active Substance: BLEOMYCIN SULFATE
     Indication: Germ cell cancer
     Dosage: UNK
  4. ETOPOSIDE [Concomitant]
     Active Substance: ETOPOSIDE
     Indication: Germ cell cancer
     Dosage: UNK
  5. CISPLATIN [Concomitant]
     Active Substance: CISPLATIN
     Indication: Germ cell cancer
     Dosage: UNK

REACTIONS (1)
  - Febrile neutropenia [Unknown]
